FAERS Safety Report 22154430 (Version 1)
Quarter: 2023Q1

REPORT INFORMATION
  Report Type: Other
  Country: IN (occurrence: None)
  Receive Date: 20230330
  Receipt Date: 20230330
  Transmission Date: 20230417
  Serious: Yes (Death, Hospitalization)
  Sender: FDA-Public Use
  Company Number: IN-ROCHE-3250374

PATIENT
  Age: 80 Year
  Sex: Male

DRUGS (1)
  1. TECENTRIQ [Suspect]
     Active Substance: ATEZOLIZUMAB
     Indication: Small cell lung cancer metastatic
     Route: 042
     Dates: start: 20221203

REACTIONS (6)
  - Off label use [Unknown]
  - Diarrhoea [Unknown]
  - Pneumonia [Fatal]
  - Oxygen saturation decreased [Unknown]
  - Tachycardia [Unknown]
  - Bradycardia [Fatal]
